FAERS Safety Report 4843929-2 (Version None)
Quarter: 2005Q4

REPORT INFORMATION
  Report Type: 
  Country: None (occurrence: None)
  Receive Date: 20051202
  Receipt Date: 20050606
  Transmission Date: 20060501
  Serious: No
  Sender: FDA-Public Use
  Company Number: US-GLAXOSMITHKLINE-A0561415A

PATIENT
  Age: 79 Year
  Sex: Male

DRUGS (1)
  1. AUGMENTIN [Suspect]
     Indication: INFLUENZA
     Dosage: 875MG TWICE PER DAY
     Route: 048

REACTIONS (3)
  - CHEST PAIN [None]
  - DYSPNOEA [None]
  - HAEMOGLOBIN DECREASED [None]
